FAERS Safety Report 16165417 (Version 4)
Quarter: 2020Q2

REPORT INFORMATION
  Report Type: Spontaneous
  Country: US (occurrence: US)
  Receive Date: 20190405
  Receipt Date: 20200526
  Transmission Date: 20200713
  Serious: Yes (Death)
  Sender: FDA-Public Use
  Company Number: US-ACTELION-A-NJ2019-186766

PATIENT
  Sex: Female

DRUGS (3)
  1. OPSUMIT [Suspect]
     Active Substance: MACITENTAN
     Indication: PULMONARY ARTERIAL HYPERTENSION
     Dosage: 10 MG, QD
     Route: 048
  2. TADALAFIL. [Concomitant]
     Active Substance: TADALAFIL
  3. WARFARIN [Concomitant]
     Active Substance: WARFARIN

REACTIONS (3)
  - Asthenia [Unknown]
  - Death [Fatal]
  - Product dose omission [Unknown]
